FAERS Safety Report 20446709 (Version 2)
Quarter: 2022Q1

REPORT INFORMATION
  Report Type: Report from Study
  Country: DE (occurrence: None)
  Receive Date: 20220208
  Receipt Date: 20220215
  Transmission Date: 20220424
  Serious: Yes (Death)
  Sender: FDA-Public Use
  Company Number: DE-ROCHE-3020870

PATIENT
  Age: 64 Year
  Sex: Female
  Weight: 77 kg

DRUGS (18)
  1. ATEZOLIZUMAB [Suspect]
     Active Substance: ATEZOLIZUMAB
     Indication: Triple negative breast cancer
     Dosage: THE DATE OF MOST RECENT DOSE OF ATEZOLIZUMAB (840 MG) PRIOR TO AE AND SAE (SERIOUS ADVERSE EVENT) ON
     Route: 042
     Dates: start: 20210409
  2. PACLITAXEL [Suspect]
     Active Substance: PACLITAXEL
     Indication: Triple negative breast cancer
     Dosage: THE DATE OF MOST RECENT DOSE OF  PACLITAXEL (162 MG) PRIOR TO AE AND SAE (SERIOUS ADVERSE EVENT) ONS
     Route: 042
     Dates: start: 20210409
  3. EPIRUBICIN [Suspect]
     Active Substance: EPIRUBICIN
     Indication: Triple negative breast cancer
     Dosage: THE DATE OF MOST RECENT DOSE OF EPIRUBICIN (162 MG) PRIOR TO AE AND SAE (SERIOUS ADVERSE EVENT) ONSE
     Route: 042
     Dates: start: 20210706
  4. CYCLOPHOSPHAMIDE [Suspect]
     Active Substance: CYCLOPHOSPHAMIDE
     Indication: Triple negative breast cancer
     Dosage: THE DATE OF MOST RECENT DOSE OF CYCLOPHOSPHAMIDE (1081 MG) PRIOR TO AE AND SAE (SERIOUS ADVERSE EVEN
     Route: 042
     Dates: start: 20210706
  5. PEGFILGRASTIM [Suspect]
     Active Substance: PEGFILGRASTIM
     Indication: Triple negative breast cancer
     Dosage: CYCLE 4 VISIT 1
     Route: 058
     Dates: start: 20210707, end: 20210707
  6. PEGFILGRASTIM [Suspect]
     Active Substance: PEGFILGRASTIM
     Dosage: CYCLE 4 VISIT 2
     Route: 058
     Dates: start: 20210721, end: 20210721
  7. PEGFILGRASTIM [Suspect]
     Active Substance: PEGFILGRASTIM
     Dosage: CYCLE 4 VISIT 2
     Route: 058
     Dates: start: 20210804, end: 20210804
  8. PEGFILGRASTIM [Suspect]
     Active Substance: PEGFILGRASTIM
     Dosage: CYCLE 4 VISIT 2
     Route: 058
     Dates: start: 20210818, end: 20210818
  9. ABRAXANE [Suspect]
     Active Substance: PACLITAXEL
     Indication: Triple negative breast cancer
     Dosage: CYCLE 1 VISIT 4
     Route: 042
     Dates: start: 20210430
  10. ABRAXANE [Suspect]
     Active Substance: PACLITAXEL
     Dosage: CYCLE 2 VISIT 1
     Route: 042
     Dates: start: 20210507
  11. ABRAXANE [Suspect]
     Active Substance: PACLITAXEL
     Dosage: CYCLE 2 VISIT 2
     Route: 042
     Dates: start: 20210517
  12. ABRAXANE [Suspect]
     Active Substance: PACLITAXEL
     Dosage: CYCLE 1 VISIT 3
     Route: 042
     Dates: start: 20210423
  13. ABRAXANE [Suspect]
     Active Substance: PACLITAXEL
     Dosage: CYCLE 2 VISIT 4
     Route: 042
     Dates: start: 20210601
  14. ABRAXANE [Suspect]
     Active Substance: PACLITAXEL
     Dosage: CYCLE 2 VISIT 3
     Route: 042
     Dates: start: 20210525
  15. ABRAXANE [Suspect]
     Active Substance: PACLITAXEL
     Dosage: CYCLE 3 VISIT 1
     Route: 042
     Dates: start: 20210608
  16. ABRAXANE [Suspect]
     Active Substance: PACLITAXEL
     Dosage: CYCLE 3 VISIT 2
     Route: 042
     Dates: start: 20210615
  17. ABRAXANE [Suspect]
     Active Substance: PACLITAXEL
     Dosage: CYCLE 3 VISIT 2
     Route: 042
     Dates: start: 20210622
  18. ABRAXANE [Suspect]
     Active Substance: PACLITAXEL
     Dosage: CYCLE 3 VISIT 3
     Route: 042
     Dates: start: 20210629

REACTIONS (1)
  - Death [Fatal]

NARRATIVE: CASE EVENT DATE: 20211031
